FAERS Safety Report 5645756-5 (Version None)
Quarter: 2008Q1

REPORT INFORMATION
  Report Type: 
  Country: None (occurrence: None)
  Receive Date: 20080229
  Receipt Date: 20080222
  Transmission Date: 20080703
  Serious: No
  Sender: FDA-Public Use
  Company Number: US-BAXTER-2008BH001621

PATIENT
  Age: 69 Year
  Sex: Female

DRUGS (1)
  1. HEPARIN SODIUM [Suspect]
     Indication: INTRAVENOUS CATHETER MANAGEMENT
     Dosage: DOSE UNIT:UNKNOWN
     Route: 042
     Dates: start: 20080101, end: 20080101

REACTIONS (3)
  - CHEST PAIN [None]
  - DYSPNOEA [None]
  - HAEMOGLOBIN DECREASED [None]
